FAERS Safety Report 6142213-7 (Version None)
Quarter: 2009Q2

REPORT INFORMATION
  Report Type: 
  Country: None (occurrence: None)
  Receive Date: 20090403
  Receipt Date: 20080514
  Transmission Date: 20091009
  Serious: Yes (Death, Hospitalization)
  Sender: FDA-Public Use
  Company Number: US-ASTRAZENECA-2007UW00341

PATIENT
  Age: 31795 Day
  Sex: Female
  Weight: 61.2 kg

DRUGS (18)
  1. SEROQUEL [Suspect]
     Indication: HYPOTHYROIDISM
     Route: 048
     Dates: start: 20050214, end: 20050308
  2. FLUCONAZOLE [Concomitant]
     Route: 048
  3. SYNTHROID [Concomitant]
  4. ASPIRIN [Concomitant]
  5. ATIVAN [Concomitant]
  6. RISPERDAL [Concomitant]
  7. BUSPAR [Concomitant]
  8. DILTIAZEM [Concomitant]
  9. DIFLUCAN [Concomitant]
  10. MEDROL [Concomitant]
  11. LOTRISONE [Concomitant]
  12. DIOVAN [Concomitant]
  13. LOVENOX [Concomitant]
  14. CLONIDINE [Concomitant]
  15. PROTONIX [Concomitant]
  16. IPRATROPIN [Concomitant]
  17. PULMICORT-100 [Concomitant]
  18. LOPENEX [Concomitant]

REACTIONS (12)
  - ACUTE RIGHT VENTRICULAR FAILURE [None]
  - ATRIAL FIBRILLATION [None]
  - COGNITIVE DISORDER [None]
  - DELIRIUM [None]
  - HEPATIC NECROSIS [None]
  - MITRAL VALVE DISEASE [None]
  - PNEUMONIA [None]
  - PULMONARY HAEMORRHAGE [None]
  - PULMONARY OEDEMA [None]
  - RENAL FAILURE ACUTE [None]
  - SEPSIS [None]
  - SEPTIC SHOCK [None]
